FAERS Safety Report 19126178 (Version 1)
Quarter: 2021Q2

REPORT INFORMATION
  Report Type: Spontaneous
  Country: US (occurrence: US)
  Receive Date: 20210412
  Receipt Date: 20210412
  Transmission Date: 20210717
  Serious: Yes (Life-Threatening, Disabling)
  Sender: FDA-Public Use
  Company Number: None

PATIENT
  Age: 60 Year
  Sex: Female
  Weight: 67.5 kg

DRUGS (2)
  1. ALBUTEROL INHALER [Concomitant]
     Active Substance: ALBUTEROL
  2. LEVOTHYROXINE. [Suspect]
     Active Substance: LEVOTHYROXINE
     Indication: HYPOTHYROIDISM
     Dosage: ?          QUANTITY:2 TABLET(S);?
     Route: 048

REACTIONS (24)
  - Myalgia [None]
  - Feeling cold [None]
  - Hyperthyroidism [None]
  - Speech disorder [None]
  - Muscular weakness [None]
  - Goitre [None]
  - Palpitations [None]
  - Swelling face [None]
  - Illness [None]
  - Stress [None]
  - Bedridden [None]
  - Agitation [None]
  - Skin atrophy [None]
  - Product measured potency issue [None]
  - Alopecia [None]
  - Decreased appetite [None]
  - Immune system disorder [None]
  - Weight decreased [None]
  - Hyperhidrosis [None]
  - Cardiac discomfort [None]
  - Product quality issue [None]
  - Memory impairment [None]
  - Constipation [None]
  - Feeling hot [None]

NARRATIVE: CASE EVENT DATE: 20210218
